FAERS Safety Report 7605600-3 (Version None)
Quarter: 2011Q3

REPORT INFORMATION
  Report Type: 
  Country: None (occurrence: None)
  Receive Date: 20110713
  Receipt Date: 20110630
  Transmission Date: 20111222
  Serious: Yes (Death)
  Sender: FDA-Public Use
  Company Number: GB-KINGPHARMUSA00001-K201000918

PATIENT
  Age: 48 Year
  Sex: Female

DRUGS (4)
  1. EPIPEN [Suspect]
     Indication: ANAPHYLACTIC REACTION
     Dosage: 0.3 MG, SINGLE
     Route: 030
  2. PREDNISOLONE [Concomitant]
     Indication: ANAPHYLACTIC REACTION
     Dosage: 50 MG, UNK
  3. PROMETHAZINE [Suspect]
     Indication: ANAPHYLACTIC REACTION
     Dosage: 50 MG, SINGLE
  4. ANTIHISTAMINES [Concomitant]
     Indication: ANAPHYLACTIC REACTION

REACTIONS (8)
  - INJECTION SITE INFECTION [None]
  - CLOSTRIDIAL INFECTION [None]
  - INJECTION SITE PAIN [None]
  - GAS GANGRENE [None]
  - PURULENCE [None]
  - CREPITATIONS [None]
  - SEPSIS [None]
  - SKIN DISCOLOURATION [None]
